FAERS Safety Report 5601331-X (Version None)
Quarter: 2008Q1

REPORT INFORMATION
  Report Type: 
  Country: None (occurrence: None)
  Receive Date: 20080124
  Receipt Date: 20080118
  Transmission Date: 20080703
  Serious: Yes (Hospitalization, Other)
  Sender: FDA-Public Use
  Company Number: US-PURDUE-2012016

PATIENT
  Age: 42 Year
  Sex: Male

DRUGS (8)
  1. OXYCONTIN [Suspect]
     Indication: PAIN
     Dosage: UNK MG, SEE TEXT
     Route: 042
     Dates: start: 20000401
  2. LIDOCAINE HYDROCHLORIDE [Concomitant]
     Indication: DRUG USE FOR UNKNOWN INDICATION
     Dosage: UNK, UNK
     Route: 065
  3. WELLBUTRIN [Concomitant]
  4. CELEXA [Concomitant]
  5. TRAZODONE HCL [Concomitant]
  6. VALIUM [Concomitant]
  7. CODEINE [Concomitant]
  8. LORCET [Concomitant]

REACTIONS (15)
  - ACCIDENTAL OVERDOSE [None]
  - ANXIETY [None]
  - BURNING SENSATION [None]
  - DEPRESSION [None]
  - DRUG ABUSE [None]
  - DRUG DEPENDENCE [None]
  - DRUG TOLERANCE [None]
  - DRUG WITHDRAWAL SYNDROME [None]
  - DYSPNOEA [None]
  - EMOTIONAL DISTRESS [None]
  - INTENTIONAL DRUG MISUSE [None]
  - PAIN [None]
  - PHARYNGEAL OEDEMA [None]
  - PSYCHOMOTOR HYPERACTIVITY [None]
  - STRIDOR [None]
